FAERS Safety Report 8444096-9 (Version None)
Quarter: 2012Q2

REPORT INFORMATION
  Report Type: 
  Country: None (occurrence: None)
  Receive Date: 20120618
  Receipt Date: 20120614
  Transmission Date: 20120825
  Serious: Yes (Death, Hospitalization)
  Sender: FDA-Public Use
  Company Number: PHEH2012US009385

PATIENT
  Sex: Female

DRUGS (1)
  1. RECLAST [Suspect]
     Route: 042
     Dates: start: 20100607

REACTIONS (5)
  - PAIN [None]
  - FALL [None]
  - DEATH [None]
  - LUNG DISORDER [None]
  - GENERAL PHYSICAL HEALTH DETERIORATION [None]
